FAERS Safety Report 4886752-5 (Version None)
Quarter: 2006Q1

REPORT INFORMATION
  Report Type: 
  Country: None (occurrence: None)
  Receive Date: 20060120
  Receipt Date: 20060110
  Transmission Date: 20060701
  Serious: Yes (Death)
  Sender: FDA-Public Use
  Company Number: US-ROCHE-431636

PATIENT
  Sex: Male

DRUGS (1)
  1. ACCUTANE [Suspect]
     Indication: DRUG USE FOR UNKNOWN INDICATION
     Route: 048

REACTIONS (13)
  - AFFECT LABILITY [None]
  - AGGRESSION [None]
  - AUTOMATISM [None]
  - COMPLETED SUICIDE [None]
  - DELIRIUM [None]
  - DEPRESSION [None]
  - EMOTIONAL DISORDER [None]
  - IMPULSE-CONTROL DISORDER [None]
  - INJURY [None]
  - MENTAL DISORDER [None]
  - PAIN [None]
  - SUICIDAL IDEATION [None]
  - SUICIDE ATTEMPT [None]
